FAERS Safety Report 5166622-8 (Version None)
Quarter: 2006Q4

REPORT INFORMATION
  Report Type: 
  Country: None (occurrence: None)
  Receive Date: 20061207
  Receipt Date: 20041215
  Transmission Date: 20070319
  Serious: Yes (Hospitalization)
  Sender: FDA-Public Use
  Company Number: SEWYE288217DEC04

PATIENT
  Sex: Female
  Weight: 65 kg

DRUGS (8)
  1. ENBREL [Suspect]
     Indication: PSORIATIC ARTHROPATHY
     Route: 058
     Dates: start: 20040506, end: 20040929
  2. ENBREL [Suspect]
     Indication: GOUT
  3. FURIX [Concomitant]
     Dosage: 40 MG EVERY
     Route: 048
  4. PILOCARPINE [Concomitant]
  5. ACETAMINOPHEN [Concomitant]
  6. PREDNISOLONE [Concomitant]
  7. OXYCONTIN [Concomitant]
     Dosage: 20 MG EVERY
     Route: 048
  8. VIOXX [Concomitant]
     Dosage: 25 MG EVERY
     Route: 048
     Dates: start: 20030101, end: 20040929

REACTIONS (2)
  - MUSCULOSKELETAL STIFFNESS [None]
  - POLYNEUROPATHY [None]
